FAERS Safety Report 13972005 (Version 1)
Quarter: 2017Q3

REPORT INFORMATION
  Report Type: Spontaneous
  Country: US (occurrence: US)
  Receive Date: 20170915
  Receipt Date: 20170915
  Transmission Date: 20171128
  Serious: No
  Sender: FDA-Public Use
  Company Number: None

PATIENT
  Age: 21 Year
  Sex: Female
  Weight: 54 kg

DRUGS (2)
  1. DOXE-PIN HCL 50 MG CAP MYLAN [Suspect]
     Active Substance: DOXEPIN HYDROCHLORIDE
     Indication: SLEEP DISORDER
     Dosage: ?          QUANTITY:1 CAPSULE(S);?
     Route: 048
     Dates: start: 20170419, end: 20170424
  2. DOXE-PIN HCL 50 MG CAP MYLAN [Suspect]
     Active Substance: DOXEPIN HYDROCHLORIDE
     Indication: RASH
     Dosage: ?          QUANTITY:1 CAPSULE(S);?
     Route: 048
     Dates: start: 20170419, end: 20170424

REACTIONS (4)
  - Sleep paralysis [None]
  - Sleep terror [None]
  - Depression [None]
  - Insomnia [None]

NARRATIVE: CASE EVENT DATE: 20170419
